FAERS Safety Report 16684202 (Version 1)
Quarter: 2019Q3

REPORT INFORMATION
  Report Type: Spontaneous
  Country: US (occurrence: US)
  Receive Date: 20190808
  Receipt Date: 20190808
  Transmission Date: 20191004
  Serious: No
  Sender: FDA-Public Use
  Company Number: US-009507513-1908USA001972

PATIENT
  Sex: Female

DRUGS (3)
  1. FOLLISTIM AQ [Suspect]
     Active Substance: FOLLITROPIN
     Indication: INFERTILITY FEMALE
     Dosage: 225 INTERNATIONAL UNIT, DAILY
     Route: 058
     Dates: start: 20190430
  2. MENOPUR [Suspect]
     Active Substance: FOLLITROPIN\LUTEINIZING HORMONE
  3. GANIRELIX ACETATE INJECTION [Suspect]
     Active Substance: GANIRELIX ACETATE
     Indication: INFERTILITY FEMALE
     Dosage: 250 MICROGRAM, DAILY
     Route: 058
     Dates: start: 20190430

REACTIONS (1)
  - Arthralgia [Unknown]

NARRATIVE: CASE EVENT DATE: 2019
